FAERS Safety Report 5907671-9 (Version None)
Quarter: 2008Q4

REPORT INFORMATION
  Report Type: 
  Country: None (occurrence: None)
  Receive Date: 20081003
  Receipt Date: 19970106
  Transmission Date: 20090506
  Serious: Yes (Death, Other)
  Sender: FDA-Public Use
  Company Number: JP-ROCHE-74311

PATIENT
  Age: 50 Year
  Sex: Male

DRUGS (2)
  1. ROFERON-A [Suspect]
     Indication: HEPATITIS NON-A NON-B
     Route: 030
     Dates: end: 19961014
  2. ROFERON-A [Suspect]
     Route: 030

REACTIONS (14)
  - BLOOD CHOLINESTERASE DECREASED [None]
  - BLOOD CREATININE INCREASED [None]
  - BLOOD UREA INCREASED [None]
  - COMA HEPATIC [None]
  - DEATH [None]
  - DIARRHOEA [None]
  - HYPOTENSION [None]
  - INJECTION SITE MASS [None]
  - INJECTION SITE PAIN [None]
  - JAUNDICE [None]
  - LEUKOPENIA [None]
  - OLIGURIA [None]
  - PYREXIA [None]
  - THROMBOCYTOPENIA [None]
